FAERS Safety Report 7464813-4 (Version None)
Quarter: 2011Q2

REPORT INFORMATION
  Report Type: 
  Country: None (occurrence: None)
  Receive Date: 20110509
  Receipt Date: 20110426
  Transmission Date: 20111010
  Serious: Yes (Life-Threatening, Hospitalization)
  Sender: FDA-Public Use
  Company Number: US-BAYER-200943667NA

PATIENT
  Age: 37 Year
  Sex: Female
  Weight: 88 kg

DRUGS (7)
  1. YASMIN [Suspect]
     Indication: CONTRACEPTION
     Dosage: 1 DF (DAILY DOSE), QD, ORAL
     Route: 048
     Dates: start: 20050201, end: 20050801
  2. LISINOPRIL [Concomitant]
     Dosage: UNK
     Dates: start: 20050801
  3. ATENOLOL [Concomitant]
     Dosage: UNK
     Dates: start: 20050801
  4. MEVACOR [Concomitant]
     Dosage: UNK
     Dates: start: 20050801
  5. DILTIAZEM [Concomitant]
     Dosage: UNK
     Dates: start: 20050801
  6. STATIN [Concomitant]
     Dosage: UNK
     Dates: start: 20050819
  7. REMERON [Concomitant]
     Dosage: UNK
     Dates: start: 20050801

REACTIONS (2)
  - ACUTE MYOCARDIAL INFARCTION [None]
  - CARDIAC DISORDER [None]
